FAERS Safety Report 8125633-0 (Version None)
Quarter: 2012Q1

REPORT INFORMATION
  Report Type: 
  Country: None (occurrence: None)
  Receive Date: 20120209
  Receipt Date: 20120130
  Transmission Date: 20120608
  Serious: Yes (Hospitalization, Other)
  Sender: FDA-Public Use
  Company Number: MW-BRISTOL-MYERS SQUIBB COMPANY-16383754

PATIENT
  Age: 38 Year
  Sex: Female
  Weight: 58 kg

DRUGS (3)
  1. ETOPOSIDE [Suspect]
     Route: 048
     Dates: start: 20120118, end: 20120124
  2. ETOPOSIDE [Suspect]
     Indication: KAPOSI'S SARCOMA
     Route: 048
     Dates: start: 20120118, end: 20120124
  3. ATRIPLA [Suspect]
     Indication: ANTIRETROVIRAL THERAPY
     Dosage: 1 DF = 600/200/300 MG, FREQ: HS-AT BEDTIME
     Route: 048
     Dates: start: 20120117, end: 20120126

REACTIONS (3)
  - UROSEPSIS [None]
  - RENAL FAILURE [None]
  - GASTROENTERITIS [None]
